FAERS Safety Report 17075263 (Version 3)
Quarter: 2020Q1

REPORT INFORMATION
  Report Type: Report from Study
  Country: SE (occurrence: SE)
  Receive Date: 20191126
  Receipt Date: 20200317
  Transmission Date: 20200409
  Serious: Yes (Other)
  Sender: FDA-Public Use
  Company Number: SE-ASTRAZENECA-2019SF32537

PATIENT
  Age: 5 Year
  Sex: Male

DRUGS (14)
  1. CLONIDINE. [Suspect]
     Active Substance: CLONIDINE
     Route: 065
  2. LISDEXAMFETAMINE [Suspect]
     Active Substance: LISDEXAMFETAMINE
     Route: 065
  3. METHYLPHENIDATE. [Suspect]
     Active Substance: METHYLPHENIDATE
     Route: 065
  4. ZIPRASIDONE. [Suspect]
     Active Substance: ZIPRASIDONE
     Route: 065
  5. AMFETAMINE [Suspect]
     Active Substance: AMPHETAMINE
     Route: 065
  6. ARIPIPRAZOLE. [Suspect]
     Active Substance: ARIPIPRAZOLE
     Route: 065
  7. CHLORPROMAZINE. [Suspect]
     Active Substance: CHLORPROMAZINE
     Route: 065
  8. DEXAMFETAMINE [Suspect]
     Active Substance: DEXTROAMPHETAMINE
     Route: 065
  9. ILOPERIDONE. [Suspect]
     Active Substance: ILOPERIDONE
     Route: 065
  10. LITHIUM. [Suspect]
     Active Substance: LITHIUM
     Route: 065
  11. VALPROIC ACID. [Suspect]
     Active Substance: VALPROIC ACID
     Route: 065
  12. CARBAMAZEPINE. [Suspect]
     Active Substance: CARBAMAZEPINE
     Route: 065
  13. QUETIAPINE. [Suspect]
     Active Substance: QUETIAPINE
     Route: 048
  14. ATOMOXETINE. [Suspect]
     Active Substance: ATOMOXETINE HYDROCHLORIDE
     Route: 065

REACTIONS (30)
  - Aggression [Unknown]
  - Sydenham^s chorea [Unknown]
  - Speech disorder [Unknown]
  - Streptococcal infection [Unknown]
  - Insomnia [Unknown]
  - Choreoathetosis [Unknown]
  - Psychomotor hyperactivity [Unknown]
  - Suicidal ideation [Unknown]
  - Bacterial infection [Unknown]
  - Anxiety [Unknown]
  - Depressed mood [Unknown]
  - Sleep disorder [Unknown]
  - Fatigue [Unknown]
  - Mood altered [Unknown]
  - Affect lability [Unknown]
  - Drug ineffective [Unknown]
  - Homicidal ideation [Unknown]
  - Hyperkinesia [Unknown]
  - Dystonia [Unknown]
  - Coordination abnormal [Unknown]
  - Poor quality sleep [Unknown]
  - Bruxism [Unknown]
  - Off label use [Unknown]
  - Crying [Unknown]
  - Decreased eye contact [Unknown]
  - Trismus [Unknown]
  - Oppositional defiant disorder [Unknown]
  - Nervousness [Unknown]
  - Irritability [Unknown]
  - Dyskinesia [Unknown]
